FAERS Safety Report 11194915 (Version 1)
Quarter: 2015Q2

REPORT INFORMATION
  Report Type: Report from Study
  Country: FR (occurrence: FR)
  Receive Date: 20150617
  Receipt Date: 20150617
  Transmission Date: 20150821
  Serious: Yes (Other)
  Sender: FDA-Public Use
  Company Number: FR-ROCHE-1594255

PATIENT
  Sex: Male
  Weight: 87 kg

DRUGS (4)
  1. LEVOFOLINATE [Suspect]
     Active Substance: LEVOLEUCOVORIN CALCIUM
     Indication: COLORECTAL CANCER METASTATIC
     Dosage: DATE OF LAST ADMINISTRATION PRIOR TO SAE-21/APR/2015
     Route: 065
     Dates: start: 20150221
  2. 5-FLUOROURACIL [Suspect]
     Active Substance: FLUOROURACIL
     Indication: COLORECTAL CANCER METASTATIC
     Dosage: DATE OF LAST ADMINISTRATION PRIOR TO SAE-21/APR/2015
     Route: 065
     Dates: start: 20150221
  3. BEVACIZUMAB [Suspect]
     Active Substance: BEVACIZUMAB
     Indication: COLORECTAL CANCER METASTATIC
     Dosage: DATE OF LAST ADMINISTRATION PRIOR TO SAE-21/APR/2015
     Route: 065
     Dates: start: 20150312
  4. IRINOTECAN [Suspect]
     Active Substance: IRINOTECAN
     Indication: COLORECTAL CANCER METASTATIC
     Dosage: DATE OF LAST ADMINISTRATION PRIOR TO SAE-21/APR/2015
     Route: 065
     Dates: start: 20150221

REACTIONS (1)
  - Phlebitis [Recovered/Resolved]

NARRATIVE: CASE EVENT DATE: 20150428
